FAERS Safety Report 10196314 (Version 1)
Quarter: 2014Q2

REPORT INFORMATION
  Report Type: Spontaneous
  Country: US (occurrence: None)
  Receive Date: 20140522
  Receipt Date: 20140522
  Transmission Date: 20141212
  Serious: Yes (Life-Threatening, Hospitalization)
  Sender: FDA-Public Use
  Company Number: 2014/026

PATIENT
  Age: 35 Year
  Sex: Male

DRUGS (3)
  1. AMLODIPINE (NO PREF.NAME) 5 MG [Suspect]
     Route: 048
  2. METOPROLOL (NO PREF.NAME) 25 MG [Suspect]
     Route: 048
  3. VERAPAMIL ER (NO PREF.NAME) 180 MG [Suspect]
     Route: 048

REACTIONS (7)
  - Sinus bradycardia [None]
  - Renal failure acute [None]
  - Hypoglycaemia [None]
  - Suicide attempt [None]
  - Intentional overdose [None]
  - Oxygen saturation decreased [None]
  - Shock [None]
